FAERS Safety Report 19238729 (Version 1)
Quarter: 2021Q2

REPORT INFORMATION
  Report Type: Report from Study
  Country: JP (occurrence: JP)
  Receive Date: 20210510
  Receipt Date: 20210510
  Transmission Date: 20210717
  Serious: Yes (Other)
  Sender: FDA-Public Use
  Company Number: JP-PFIZER INC-2021504592

PATIENT
  Age: 20 Year
  Sex: Male

DRUGS (5)
  1. CYTARABINE. [Suspect]
     Active Substance: CYTARABINE
  2. ETOPOSIDE. [Suspect]
     Active Substance: ETOPOSIDE
  3. VINCRISTINE [Suspect]
     Active Substance: VINCRISTINE
  4. MERCAPTOPURINE. [Suspect]
     Active Substance: MERCAPTOPURINE
  5. METHOTREXATE SODIUM. [Suspect]
     Active Substance: METHOTREXATE SODIUM

REACTIONS (1)
  - Hepatitis B reactivation [Unknown]
